FAERS Safety Report 8915393 (Version 2)
Quarter: 2012Q4

REPORT INFORMATION
  Report Type: 
  Country: CN (occurrence: CN)
  Receive Date: 20121119
  Receipt Date: 20121123
  Transmission Date: 20130627
  Serious: Yes (Other)
  Sender: FDA-Public Use
  Company Number: CN-PFIZER INC-2012287359

PATIENT
  Age: 1 Year
  Sex: Female
  Weight: 11.5 kg

DRUGS (1)
  1. IBUPROFEN [Suspect]
     Indication: FEVER
     Dosage: 4 ml (80mg), 2x/day
     Route: 048
     Dates: start: 20121108, end: 20121108

REACTIONS (4)
  - Hypersensitivity [Recovered/Resolved]
  - Oedema peripheral [Recovered/Resolved]
  - Generalised oedema [Recovered/Resolved]
  - Lip oedema [Recovered/Resolved]
